FAERS Safety Report 18054009 (Version 9)
Quarter: 2022Q2

REPORT INFORMATION
  Report Type: Spontaneous
  Country: US (occurrence: US)
  Receive Date: 20200722
  Receipt Date: 20220401
  Transmission Date: 20220721
  Serious: Yes (Life-Threatening, Hospitalization)
  Sender: FDA-Public Use
  Company Number: US-PFIZER INC-2020226124

PATIENT
  Age: 56 Year
  Sex: Male
  Weight: 132 kg

DRUGS (3)
  1. LYRICA [Suspect]
     Active Substance: PREGABALIN
     Indication: Diabetic neuropathy
     Dosage: UNK
  2. LYRICA [Suspect]
     Active Substance: PREGABALIN
     Indication: Back pain
     Dosage: 150 MG, 3X/DAY
     Route: 048
     Dates: start: 2017
  3. LYRICA [Suspect]
     Active Substance: PREGABALIN
     Indication: Pain
     Dosage: 200 MG, 3X/DAY
     Route: 048

REACTIONS (6)
  - Near death experience [Unknown]
  - Memory impairment [Unknown]
  - Pain in extremity [Unknown]
  - Headache [Unknown]
  - Anxiety [Unknown]
  - Amnesia [Unknown]

NARRATIVE: CASE EVENT DATE: 20200821
